FAERS Safety Report 19769985 (Version 1)
Quarter: 2021Q3

REPORT INFORMATION
  Report Type: Spontaneous
  Country: US (occurrence: US)
  Receive Date: 20210830
  Receipt Date: 20210830
  Transmission Date: 20211014
  Serious: Yes (Disabling)
  Sender: FDA-Public Use
  Company Number: None

PATIENT
  Age: 60 Year
  Sex: Female
  Weight: 57.15 kg

DRUGS (1)
  1. HCG [Suspect]
     Active Substance: GONADOTROPHIN, CHORIONIC
     Indication: WEIGHT CONTROL
     Dosage: ?          QUANTITY:20 DF DOSAGE FORM;OTHER FREQUENCY:DAILY;?
     Route: 058
     Dates: start: 20210618, end: 20210728

REACTIONS (3)
  - Injection site bruising [None]
  - Injection site pruritus [None]
  - Pain [None]
